FAERS Safety Report 4752681-0 (Version None)
Quarter: 2005Q3

REPORT INFORMATION
  Report Type: 
  Country: None (occurrence: None)
  Receive Date: 20050824
  Receipt Date: 20050817
  Transmission Date: 20060218
  Serious: Yes (Hospitalization)
  Sender: FDA-Public Use
  Company Number: USA0508104744

PATIENT
  Age: 86 Year
  Sex: Female

DRUGS (10)
  1. CYMBALTA [Suspect]
     Dosage: 60 MG
     Dates: start: 20050726
  2. ACETYLSALICYLIC ACID SRT [Concomitant]
  3. LIPITOR [Concomitant]
  4. EVISTA [Concomitant]
  5. INDAPAMIDE [Concomitant]
  6. THYROID TAB [Concomitant]
  7. GLUCOPHAGE [Concomitant]
  8. DIOVAN [Concomitant]
  9. M.V.I. [Concomitant]
  10. TUMS (CALCIUM CARBONATE) [Concomitant]

REACTIONS (3)
  - HYPONATRAEMIA [None]
  - NAUSEA [None]
  - VOMITING [None]
